FAERS Safety Report 25075793 (Version 1)
Quarter: 2025Q1

REPORT INFORMATION
  Report Type: Report from Study
  Country: ES (occurrence: ES)
  Receive Date: 20250313
  Receipt Date: 20250313
  Transmission Date: 20250409
  Serious: Yes (Hospitalization)
  Sender: ASTELLAS
  Company Number: ES-ASTELLAS-2025-AER-013935

PATIENT
  Age: 59 Year
  Sex: Female

DRUGS (5)
  1. ISAVUCONAZOLE [Suspect]
     Active Substance: ISAVUCONAZOLE
     Indication: Pneumonia
     Dosage: 200 MG TID
     Route: 065
     Dates: start: 202010
  2. LENVATINIB [Suspect]
     Active Substance: LENVATINIB
     Indication: Anaplastic thyroid cancer
     Route: 065
     Dates: start: 2020
  3. CEFTOBIPROLE [Suspect]
     Active Substance: CEFTOBIPROLE
     Indication: Aspergillus infection
     Route: 042
     Dates: start: 20201101, end: 20201104
  4. CEFTOBIPROLE [Suspect]
     Active Substance: CEFTOBIPROLE
     Indication: Pneumonia
  5. AZITHROMYCIN [Suspect]
     Active Substance: AZITHROMYCIN
     Indication: Pneumonia
     Dosage: 500 MG TID
     Route: 065
     Dates: start: 202010

REACTIONS (1)
  - Thrombocytopenia [Unknown]

NARRATIVE: CASE EVENT DATE: 20201119
